FAERS Safety Report 5580571-2 (Version None)
Quarter: 2008Q1

REPORT INFORMATION
  Report Type: 
  Country: None (occurrence: None)
  Receive Date: 20080103
  Receipt Date: 20071226
  Transmission Date: 20080703
  Serious: Yes (Hospitalization)
  Sender: FDA-Public Use
  Company Number: JP-ABBOTT-05P-087-0309864-00

PATIENT
  Age: 79 Year
  Sex: Male
  Weight: 69 kg

DRUGS (3)
  1. CLARITHROMYCIN [Suspect]
     Indication: PNEUMONIA
     Route: 048
     Dates: start: 20050604, end: 20050606
  2. PRAVASTATIN SODIUM [Concomitant]
     Indication: HYPERLIPIDAEMIA
     Route: 048
  3. TRIAZOLAM [Concomitant]
     Indication: INSOMNIA
     Route: 048

REACTIONS (1)
  - INTERSTITIAL LUNG DISEASE [None]
